FAERS Safety Report 4776423-8 (Version None)
Quarter: 2005Q3

REPORT INFORMATION
  Report Type: 
  Country: None (occurrence: None)
  Receive Date: 20050915
  Receipt Date: 20050830
  Transmission Date: 20060218
  Serious: Yes (Other)
  Sender: FDA-Public Use
  Company Number: 2005PL000065

PATIENT
  Age: 38 Year
  Sex: Female

DRUGS (3)
  1. AZATHIOPRINE [Suspect]
     Indication: RENAL TRANSPLANT
  2. PREDNISONE [Suspect]
     Indication: RENAL TRANSPLANT
  3. CYCLOSPORINE [Concomitant]
     Indication: RENAL TRANSPLANT

REACTIONS (6)
  - CERVIX NEOPLASM [None]
  - CYTOMEGALOVIRUS INFECTION [None]
  - PAPILLOMA VIRAL INFECTION [None]
  - POST PROCEDURAL COMPLICATION [None]
  - SQUAMOUS CELL CARCINOMA [None]
  - VULVAL CANCER [None]
